FAERS Safety Report 5717112-2 (Version None)
Quarter: 2008Q2

REPORT INFORMATION
  Report Type: 
  Country: None (occurrence: None)
  Receive Date: 20080423
  Receipt Date: 20080414
  Transmission Date: 20081010
  Serious: Yes (Other)
  Sender: FDA-Public Use
  Company Number: S08-USA-01444-01

PATIENT
  Age: 35 Year
  Sex: Female

DRUGS (2)
  1. LEXAPRO [Suspect]
  2. AVELOX [Suspect]
     Dosage: 400 MG ONCE
     Dates: start: 20080318, end: 20080318

REACTIONS (3)
  - FEELING ABNORMAL [None]
  - HALLUCINATION [None]
  - HOMICIDAL IDEATION [None]
